FAERS Safety Report 24744917 (Version 1)
Quarter: 2024Q4

REPORT INFORMATION
  Report Type: Spontaneous
  Country: FR (occurrence: FR)
  Receive Date: 20241217
  Receipt Date: 20241217
  Transmission Date: 20250115
  Serious: Yes (Life-Threatening)
  Sender: MYLAN
  Company Number: None

PATIENT
  Age: 37 Year
  Sex: Male
  Weight: 61.8 kg

DRUGS (4)
  1. METHOTREXATE [Suspect]
     Active Substance: METHOTREXATE
     Indication: Acute lymphocytic leukaemia
     Dosage: 1730 MILLIGRAM, QD
     Route: 042
     Dates: start: 20241031, end: 20241031
  2. ONCASPAR [Suspect]
     Active Substance: PEGASPARGASE
     Indication: T-cell type acute leukaemia
     Dosage: 3750 INTERNATIONAL UNIT, CYCLE (DAY 6)
     Route: 042
     Dates: start: 20241105, end: 20241105
  3. VINCRISTINE SULFATE [Suspect]
     Active Substance: VINCRISTINE SULFATE
     Indication: T-cell type acute leukaemia
     Dosage: 3750 INTERNATIONAL UNIT
     Route: 042
     Dates: start: 20241031, end: 20241031
  4. VINCRISTINE SULFATE [Suspect]
     Active Substance: VINCRISTINE SULFATE
     Dosage: 3750 INTERNATIONAL UNIT
     Route: 042
     Dates: start: 20241105, end: 20241105

REACTIONS (2)
  - Coma [Recovered/Resolved]
  - Metabolic encephalopathy [Recovered/Resolved]

NARRATIVE: CASE EVENT DATE: 20241105
